FAERS Safety Report 8820952 (Version 1)
Quarter: 2012Q4

REPORT INFORMATION
  Report Type: Report from Study
  Country: US (occurrence: US)
  Receive Date: 20121002
  Receipt Date: 20121002
  Transmission Date: 20130627
  Serious: Yes (Hospitalization, Other)
  Sender: FDA-Public Use
  Company Number: US-ABBOTT-12P-163-0928626-00

PATIENT
  Age: 24 Year
  Sex: Female

DRUGS (5)
  1. HUMIRA 40 MG/0.8 ML PEN [Suspect]
     Indication: CROHN^S DISEASE
     Dates: start: 20111212
  2. ORTHOTRICYCLEN [Concomitant]
     Indication: PRODUCT USED FOR UNKNOWN INDICATION
     Dosage: 1 daily
  3. HYDROCODONE [Concomitant]
     Indication: PRODUCT USED FOR UNKNOWN INDICATION
     Dosage: 5 mg, 3 daily
  4. VITAMIN OVER THE COUNTER [Concomitant]
     Indication: PRODUCT USED FOR UNKNOWN INDICATION
     Dosage: Daily
  5. TRAZODONE [Concomitant]
     Indication: SLEEP DISORDER

REACTIONS (8)
  - Wound [Unknown]
  - Subcutaneous abscess [Unknown]
  - Contusion [Recovered/Resolved]
  - Musculoskeletal pain [Unknown]
  - Asthenia [Unknown]
  - Mobility decreased [Unknown]
  - Pain [Unknown]
  - Pain [Unknown]
